FAERS Safety Report 5952883-1 (Version None)
Quarter: 2008Q4

REPORT INFORMATION
  Report Type: 
  Country: None (occurrence: None)
  Receive Date: 20081114
  Receipt Date: 20081110
  Transmission Date: 20090506
  Serious: Yes (Death)
  Sender: FDA-Public Use
  Company Number: US-BAYER-200838096NA

PATIENT
  Age: 70 Year
  Sex: Male

DRUGS (1)
  1. LEUKINE [Suspect]
     Indication: SKIN CANCER
     Dates: start: 20050523

REACTIONS (1)
  - DEATH [None]
